FAERS Safety Report 19237513 (Version 1)
Quarter: 2021Q2

REPORT INFORMATION
  Report Type: Spontaneous
  Country: US (occurrence: US)
  Receive Date: 20210510
  Receipt Date: 20210510
  Transmission Date: 20210717
  Serious: Yes (Life-Threatening, Disabling, Other)
  Sender: FDA-Public Use
  Company Number: None

PATIENT
  Age: 57 Year
  Sex: Male
  Weight: 99 kg

DRUGS (15)
  1. OXYCODONE [Concomitant]
     Active Substance: OXYCODONE
  2. ATORVASTATIN [Concomitant]
     Active Substance: ATORVASTATIN
  3. VITAMIN B [Concomitant]
     Active Substance: VITAMIN B
  4. PREDNISONE. [Concomitant]
     Active Substance: PREDNISONE
  5. LISINOPRIL. [Concomitant]
     Active Substance: LISINOPRIL
  6. IBUPROFEN. [Concomitant]
     Active Substance: IBUPROFEN
  7. VITAMIN D [Concomitant]
     Active Substance: VITAMIN D NOS
  8. VERAPAMIL [Concomitant]
     Active Substance: VERAPAMIL HYDROCHLORIDE
  9. DIAZEPAM. [Concomitant]
     Active Substance: DIAZEPAM
  10. FISH OIL [Concomitant]
     Active Substance: FISH OIL
  11. OXYGEN. [Concomitant]
     Active Substance: OXYGEN
  12. FURISOMIDE [Concomitant]
  13. XELJANZ XR [Suspect]
     Active Substance: TOFACITINIB CITRATE
     Indication: RHEUMATOID ARTHRITIS
     Dosage: ?          QUANTITY:1 TABLET(S);?
     Route: 048
     Dates: start: 20190902, end: 20210201
  14. AMOXICILLIN. [Concomitant]
     Active Substance: AMOXICILLIN
  15. BABY ASPIRIN [Concomitant]
     Active Substance: ASPIRIN

REACTIONS (9)
  - Cardiopulmonary failure [None]
  - Pulmonary embolism [None]
  - Blood pressure increased [None]
  - Disability [None]
  - Fibrin D dimer increased [None]
  - Arrhythmia [None]
  - Loss of personal independence in daily activities [None]
  - Condition aggravated [None]
  - Renal impairment [None]

NARRATIVE: CASE EVENT DATE: 20210221
